FAERS Safety Report 10252320 (Version 1)
Quarter: 2014Q2

REPORT INFORMATION
  Report Type: Spontaneous
  Country: SK (occurrence: SK)
  Receive Date: 20140623
  Receipt Date: 20140623
  Transmission Date: 20141212
  Serious: Yes (Hospitalization)
  Sender: FDA-Public Use
  Company Number: SK-JNJFOC-20140608197

PATIENT
  Age: 59 Year
  Sex: Female

DRUGS (1)
  1. MEBENDAZOLE [Suspect]
     Indication: HEPATIC ECHINOCOCCIASIS
     Route: 065
     Dates: start: 2011

REACTIONS (2)
  - Disease progression [Unknown]
  - Off label use [Unknown]
